FAERS Safety Report 10012211 (Version 3)
Quarter: 2014Q2

REPORT INFORMATION
  Report Type: Spontaneous
  Country: US (occurrence: None)
  Receive Date: 20140312
  Receipt Date: 20140415
  Transmission Date: 20141212
  Serious: Yes (Disabling, Other)
  Sender: FDA-Public Use
  Company Number: ADR-2014-00383

PATIENT
  Age: 51 Year
  Sex: Female

DRUGS (3)
  1. BACLOFEN [Suspect]
     Indication: MUSCLE SPASTICITY
     Dosage: INTRATHECAL.
  2. MORPHINE [Suspect]
  3. SALINE [Suspect]

REACTIONS (3)
  - Paralysis [None]
  - Malaise [None]
  - Paralysis [None]
